FAERS Safety Report 4467045-7 (Version None)
Quarter: 2004Q4

REPORT INFORMATION
  Report Type: 
  Country: None (occurrence: None)
  Receive Date: 20041004
  Receipt Date: 20040625
  Transmission Date: 20050328
  Serious: Yes (Death)
  Sender: FDA-Public Use
  Company Number: US-JNJFOC-20040606401

PATIENT
  Age: 30 Year
  Sex: Male
  Weight: 104.3273 kg

DRUGS (2)
  1. FLEXERIL [Suspect]
     Indication: BACK PAIN
  2. LASIX [Concomitant]

REACTIONS (8)
  - ARRHYTHMIA [None]
  - BLOOD CHOLESTEROL INCREASED [None]
  - BLOOD POTASSIUM DECREASED [None]
  - CARDIO-RESPIRATORY ARREST [None]
  - MYOCARDIAL INFARCTION [None]
  - NODAL RHYTHM [None]
  - TORSADE DE POINTES [None]
  - VENTRICULAR EXTRASYSTOLES [None]
